FAERS Safety Report 17943403 (Version 2)
Quarter: 2021Q2

REPORT INFORMATION
  Report Type: Spontaneous
  Country: CA (occurrence: CA)
  Receive Date: 20200625
  Receipt Date: 20210628
  Transmission Date: 20210717
  Serious: Yes (Hospitalization)
  Sender: FDA-Public Use
  Company Number: CA-TEVA-2020-CA-1792698

PATIENT
  Age: 76 Year
  Sex: Female
  Weight: 84 kg

DRUGS (15)
  1. ASA [Concomitant]
     Active Substance: ASPIRIN
  2. NITROFURANTOIN. [Suspect]
     Active Substance: NITROFURANTOIN
     Indication: URINARY TRACT INFECTION
     Dosage: 200 MILLIGRAM DAILY;
     Route: 048
  3. RISPERIDONE. [Concomitant]
     Active Substance: RISPERIDONE
  4. VALPROIC ACID. [Concomitant]
     Active Substance: VALPROIC ACID
  5. FLONASE ALLERGY AQUEOUS NASAL SPRAY [Concomitant]
  6. LORAZEPAM. [Concomitant]
     Active Substance: LORAZEPAM
  7. METOPROLOL. [Concomitant]
     Active Substance: METOPROLOL
  8. VITAMIN D [Concomitant]
     Active Substance: VITAMIN D NOS
  9. ACETAMINOPHEN. [Concomitant]
     Active Substance: ACETAMINOPHEN
  10. L?THYROXINE [Concomitant]
     Active Substance: LEVOTHYROXINE
  11. ESTROGENS [Concomitant]
     Active Substance: ESTROGENS
  12. MIRTAZAPINE. [Concomitant]
     Active Substance: MIRTAZAPINE
  13. ROSUVASTATIN. [Concomitant]
     Active Substance: ROSUVASTATIN
  14. SENOKOT [Concomitant]
     Active Substance: SENNOSIDES
  15. VENLAFAXINE XR [Concomitant]
     Active Substance: VENLAFAXINE HYDROCHLORIDE

REACTIONS (5)
  - Blood bicarbonate abnormal [Recovered/Resolved]
  - PCO2 abnormal [Recovered/Resolved]
  - Blood pressure abnormal [Recovered/Resolved]
  - Blood lactic acid increased [Recovered/Resolved]
  - Oxygen consumption decreased [Recovered/Resolved]
